FAERS Safety Report 9757210 (Version 1)
Quarter: 2013Q4

REPORT INFORMATION
  Report Type: Spontaneous
  Country: GB (occurrence: GB)
  Receive Date: 20131213
  Receipt Date: 20131213
  Transmission Date: 20140711
  Serious: Yes (Other)
  Sender: FDA-Public Use
  Company Number: GB-AMGEN-GBRSP2013086950

PATIENT
  Age: 79 Year
  Sex: Female
  Weight: 59.4 kg

DRUGS (3)
  1. PROLIA [Suspect]
     Indication: OSTEOPOROSIS
     Dosage: 60 MG, UNK
     Route: 058
     Dates: start: 20120312, end: 20120615
  2. RANITIDINE [Concomitant]
     Dosage: 60 MG, BID
     Route: 048
  3. VITAMIN D                          /00107901/ [Concomitant]
     Indication: OSTEOPOROSIS
     Dosage: 1000 IU, QD
     Route: 048

REACTIONS (6)
  - Synovitis [Not Recovered/Not Resolved]
  - Red blood cell sedimentation rate increased [Not Recovered/Not Resolved]
  - Haemoglobin decreased [Not Recovered/Not Resolved]
  - Inflammation [Not Recovered/Not Resolved]
  - Seronegative arthritis [Not Recovered/Not Resolved]
  - Arthralgia [Not Recovered/Not Resolved]
